FAERS Safety Report 24972194 (Version 1)
Quarter: 2025Q1

REPORT INFORMATION
  Report Type: Spontaneous
  Country: AU (occurrence: None)
  Receive Date: 20250214
  Receipt Date: 20250214
  Transmission Date: 20250408
  Serious: No
  Sender: ALEXION PHARMACEUTICALS
  Company Number: AU-AstraZeneca-2011SE25935

PATIENT
  Age: 65 Year

DRUGS (3)
  1. NEXIUM [Suspect]
     Active Substance: ESOMEPRAZOLE MAGNESIUM
  2. FLUVAX [Suspect]
     Active Substance: INFLUENZA VIRUS VACCINE
  3. PNEUMOCOCCAL VACCINE POLYVALENT NOS [Suspect]
     Active Substance: PNEUMOCOCCAL VACCINE, POLYVALENT

REACTIONS (6)
  - Tinnitus [Recovered/Resolved]
  - Pain in extremity [Recovered/Resolved]
  - Disturbance in attention [Recovered/Resolved]
  - Nausea [Recovered/Resolved]
  - Abdominal pain upper [Recovered/Resolved]
  - Hyperhidrosis [Recovered/Resolved]
